FAERS Safety Report 5295263-7 (Version None)
Quarter: 2007Q2

REPORT INFORMATION
  Report Type: 
  Country: None (occurrence: None)
  Receive Date: 20070412
  Receipt Date: 20070330
  Transmission Date: 20071010
  Serious: Yes (Other)
  Sender: FDA-Public Use
  Company Number: US-SHR-US-2007-011523

PATIENT
  Sex: Female

DRUGS (1)
  1. BETASERON [Suspect]
     Route: 058
     Dates: start: 19941227, end: 20061201

REACTIONS (1)
  - INTRAOCULAR MELANOMA [None]
